FAERS Safety Report 9759684 (Version 2)
Quarter: 2015Q3

REPORT INFORMATION
  Report Type: Spontaneous
  Country: US (occurrence: US)
  Receive Date: 20131216
  Receipt Date: 20150806
  Transmission Date: 20151125
  Serious: No
  Sender: FDA-Public Use
  Company Number: US-GILEAD-2010-0028663

PATIENT
  Age: 68 Year
  Sex: Female
  Weight: 96.61 kg

DRUGS (15)
  1. NIACIN. [Concomitant]
     Active Substance: NIACIN
  2. METOPROLOL TARTRATE. [Concomitant]
     Active Substance: METOPROLOL TARTRATE
  3. DARVOCET-N 100 [Concomitant]
     Active Substance: ACETAMINOPHEN\PROPOXYPHENE NAPSYLATE
  4. SYNTHROID [Concomitant]
     Active Substance: LEVOTHYROXINE SODIUM
  5. TRICOR [Concomitant]
     Active Substance: FENOFIBRATE
  6. ZOLOFT [Concomitant]
     Active Substance: SERTRALINE HYDROCHLORIDE
  7. ADVAIR 100-50 DISKUS [Concomitant]
  8. FISH OIL [Concomitant]
     Active Substance: FISH OIL
  9. XANAX [Concomitant]
     Active Substance: ALPRAZOLAM
  10. LASIX [Concomitant]
     Active Substance: FUROSEMIDE
  11. COUMADIN [Concomitant]
     Active Substance: WARFARIN SODIUM
  12. METOLAZONE. [Concomitant]
     Active Substance: METOLAZONE
  13. POTASSIUM CHLOR [Concomitant]
  14. LETAIRIS [Suspect]
     Active Substance: AMBRISENTAN
     Indication: PULMONARY ARTERIAL HYPERTENSION
     Route: 048
     Dates: start: 20100331
  15. OXYGEN. [Concomitant]
     Active Substance: OXYGEN

REACTIONS (1)
  - Dyspnoea [Unknown]
